FAERS Safety Report 26155625 (Version 1)
Quarter: 2025Q4

REPORT INFORMATION
  Report Type: Spontaneous
  Country: EU (occurrence: EU)
  Receive Date: 20251215
  Receipt Date: 20251215
  Transmission Date: 20260117
  Serious: Yes (Hospitalization, Other)
  Sender: ALKEM
  Company Number: None

PATIENT
  Age: 60 Year
  Sex: Female

DRUGS (1)
  1. TACROLIMUS [Suspect]
     Active Substance: TACROLIMUS
     Indication: Immunosuppressant drug therapy
     Dosage: UNK
     Route: 065
     Dates: start: 201506

REACTIONS (4)
  - Disseminated tuberculosis [Recovered/Resolved]
  - Mycobacterial infection [Recovered/Resolved]
  - Tuberculosis gastrointestinal [Recovered/Resolved]
  - Bacterial colitis [Recovered/Resolved]

NARRATIVE: CASE EVENT DATE: 20240101
